FAERS Safety Report 21625293 (Version 4)
Quarter: 2023Q1

REPORT INFORMATION
  Report Type: Spontaneous
  Country: CA (occurrence: CA)
  Receive Date: 20221122
  Receipt Date: 20230302
  Transmission Date: 20230418
  Serious: Yes (Other)
  Sender: FDA-Public Use
  Company Number: CA-CELLTRION INC.-2022CA015241

PATIENT

DRUGS (7)
  1. INFLECTRA [Suspect]
     Active Substance: INFLIXIMAB-DYYB
     Indication: Crohn^s disease
     Dosage: 5 MG/KG, INDUCTION WEEK 2,6 THEN MAINTENANCE EVERY 8 WEEKS. HOSPITAL START
     Route: 042
     Dates: start: 20220722, end: 20221028
  2. INFLECTRA [Suspect]
     Active Substance: INFLIXIMAB-DYYB
     Dosage: 5 MG/KG, INDUCTION WEEK 2,6 THEN MAINTENANCE EVERY 8 WEEKS. HOSPITAL START
     Route: 042
     Dates: start: 20220806
  3. INFLECTRA [Suspect]
     Active Substance: INFLIXIMAB-DYYB
     Dosage: 5 MG/KG, INDUCTION WEEK 2,6 THEN MAINTENANCE EVERY 8 WEEKS. HOSPITAL START
     Route: 042
     Dates: start: 20220902
  4. INFLECTRA [Suspect]
     Active Substance: INFLIXIMAB-DYYB
     Dosage: 5 MG/KG, INDUCTION WEEK 2,6 THEN MAINTENANCE EVERY 8 WEEKS. HOSPITAL START
     Route: 042
     Dates: start: 20221028
  5. INFLECTRA [Suspect]
     Active Substance: INFLIXIMAB-DYYB
     Dosage: 10 MG/KG, EVERY 8 WEEK
     Route: 042
     Dates: start: 20221223
  6. INFLECTRA [Suspect]
     Active Substance: INFLIXIMAB-DYYB
     Dosage: 860 MG, (10 MG/KG) EVERY 8 WEEK
     Route: 042
     Dates: start: 20230220
  7. PREDNISONE [Concomitant]
     Active Substance: PREDNISONE
     Dosage: UNK
     Dates: start: 202207

REACTIONS (14)
  - Liver injury [Recovering/Resolving]
  - Cellulitis [Recovering/Resolving]
  - Off label use [Unknown]
  - Increased appetite [Unknown]
  - Fistula [Not Recovered/Not Resolved]
  - Weight increased [Unknown]
  - Abdominal distension [Not Recovered/Not Resolved]
  - Condition aggravated [Recovered/Resolved]
  - COVID-19 [Unknown]
  - Cardiac disorder [Unknown]
  - Oedema peripheral [Unknown]
  - Drug level below therapeutic [Not Recovered/Not Resolved]
  - Abscess [Recovering/Resolving]
  - Condition aggravated [Recovered/Resolved]

NARRATIVE: CASE EVENT DATE: 20220101
